FAERS Safety Report 25445604 (Version 1)
Quarter: 2025Q2

REPORT INFORMATION
  Report Type: Spontaneous
  Country: CN (occurrence: CN)
  Receive Date: 20250617
  Receipt Date: 20250617
  Transmission Date: 20250717
  Serious: Yes (Hospitalization)
  Sender: EISAI
  Company Number: CN-Eisai-EC-2025-191004

PATIENT
  Age: 55 Year
  Sex: Male
  Weight: 45.2 kg

DRUGS (1)
  1. LENVIMA [Suspect]
     Active Substance: LENVATINIB
     Indication: Hepatic cancer
     Dates: start: 202403

REACTIONS (2)
  - Diarrhoea [Recovering/Resolving]
  - Protein urine present [Unknown]

NARRATIVE: CASE EVENT DATE: 20250604
